FAERS Safety Report 7706361-X (Version None)
Quarter: 2011Q3

REPORT INFORMATION
  Report Type: 
  Country: None (occurrence: None)
  Receive Date: 20110824
  Receipt Date: 20110817
  Transmission Date: 20111222
  Serious: Yes (Other)
  Sender: FDA-Public Use
  Company Number: US-PFIZER INC-2011191812

PATIENT

DRUGS (1)
  1. TOVIAZ [Suspect]

REACTIONS (2)
  - OROPHARYNGEAL BLISTERING [None]
  - TONGUE BLISTERING [None]
